FAERS Safety Report 7479032-5 (Version None)
Quarter: 2011Q2

REPORT INFORMATION
  Report Type: 
  Country: None (occurrence: None)
  Receive Date: 20110513
  Receipt Date: 20110505
  Transmission Date: 20111010
  Serious: Yes (Other)
  Sender: FDA-Public Use
  Company Number: PHHY2011GB37786

PATIENT
  Age: 67 Year
  Sex: Male

DRUGS (10)
  1. SIMVASTATIN [Concomitant]
     Dosage: 40 MG, QD
  2. MEROPENEM [Suspect]
     Indication: OSTEOMYELITIS
     Dosage: 500 MG, TID
     Route: 042
     Dates: start: 20110411, end: 20110413
  3. ISOSORBIDE MONONITRATE [Concomitant]
     Dosage: 60 MG, QD
  4. FUROSEMIDE [Concomitant]
     Dosage: 40 MG, QD
  5. BISOPROLOL FUMARATE [Concomitant]
     Dosage: 1.25 MG, QD
  6. AMLODIPINE BESYLATE [Concomitant]
     Dosage: 5 MG, QD
  7. CLOPIDOGREL [Concomitant]
     Dosage: 75 MG, QD
  8. RAMIPRIL [Concomitant]
     Dosage: 2.5 MG, QD
  9. TRAMADOL HCL [Concomitant]
     Dosage: 1 DF, BID
  10. ASPIRIN [Concomitant]
     Dosage: 75 MG, QD

REACTIONS (2)
  - LIVER FUNCTION TEST ABNORMAL [None]
  - HEPATITIS [None]
